APPROVED DRUG PRODUCT: SYMLIN
Active Ingredient: PRAMLINTIDE ACETATE
Strength: EQ 1.5MG BASE/1.5ML (EQ 1MG BASE/ML)
Dosage Form/Route: INJECTABLE;SUBCUTANEOUS
Application: N021332 | Product #002
Applicant: ASTRAZENECA AB
Approved: Sep 25, 2007 | RLD: Yes | RS: No | Type: DISCN